FAERS Safety Report 9528544 (Version 1)
Quarter: 2013Q1

REPORT INFORMATION
  Report Type: Spontaneous
  Country: US (occurrence: None)
  Receive Date: 20130322
  Receipt Date: 20130322
  Transmission Date: 20140127
  Serious: Yes (Other)
  Sender: FDA-Public Use
  Company Number: PHEH2012US012904

PATIENT
  Age: 57 Year
  Sex: Male

DRUGS (1)
  1. NEORAL [Suspect]
     Indication: RENAL TRANSPLANT
     Route: 048

REACTIONS (4)
  - Complications of transplanted kidney [None]
  - Sinus congestion [None]
  - Rash [None]
  - Cough [None]
